FAERS Safety Report 24627460 (Version 2)
Quarter: 2024Q4

REPORT INFORMATION
  Report Type: Spontaneous
  Country: MY (occurrence: MY)
  Receive Date: 20241116
  Receipt Date: 20241126
  Transmission Date: 20250114
  Serious: Yes (Death)
  Sender: BOEHRINGER INGELHEIM
  Company Number: MY-BoehringerIngelheim-2024-BI-062483

PATIENT
  Age: 71 Year
  Sex: Male

DRUGS (12)
  1. JARDIANCE [Suspect]
     Active Substance: EMPAGLIFLOZIN
     Indication: Diabetes mellitus
     Dates: start: 20240828, end: 20240912
  2. JARDIANCE [Suspect]
     Active Substance: EMPAGLIFLOZIN
     Indication: Chronic kidney disease
  3. WARFARIN [Concomitant]
     Active Substance: WARFARIN
     Indication: Diabetes mellitus
     Dates: start: 20240828, end: 20240912
  4. WARFARIN [Concomitant]
     Active Substance: WARFARIN
     Indication: Chronic kidney disease
  5. PERINDOPRIL [Concomitant]
     Active Substance: PERINDOPRIL
     Indication: Diabetes mellitus
     Dates: start: 20240828, end: 20240912
  6. PERINDOPRIL [Concomitant]
     Active Substance: PERINDOPRIL
     Indication: Chronic kidney disease
  7. METFORMIN [Concomitant]
     Active Substance: METFORMIN HYDROCHLORIDE
     Indication: Diabetes mellitus
     Dates: start: 20240828, end: 20240912
  8. METFORMIN [Concomitant]
     Active Substance: METFORMIN HYDROCHLORIDE
     Indication: Chronic kidney disease
  9. GLICLAZIDE [Concomitant]
     Active Substance: GLICLAZIDE
     Indication: Diabetes mellitus
     Dates: start: 20240828, end: 20240912
  10. GLICLAZIDE [Concomitant]
     Active Substance: GLICLAZIDE
     Indication: Chronic kidney disease
  11. AMLODIPINE [Concomitant]
     Active Substance: AMLODIPINE BESYLATE
     Indication: Diabetes mellitus
     Dates: start: 20240828, end: 20240912
  12. AMLODIPINE [Concomitant]
     Active Substance: AMLODIPINE BESYLATE
     Indication: Chronic kidney disease

REACTIONS (6)
  - Circulatory collapse [Fatal]
  - Diabetic ketoacidosis [Fatal]
  - Pollakiuria [Unknown]
  - Polydipsia [Unknown]
  - Lethargy [Unknown]
  - Hyperglycaemia [Unknown]

NARRATIVE: CASE EVENT DATE: 20240910
